FAERS Safety Report 13833912 (Version 1)
Quarter: 2017Q3

REPORT INFORMATION
  Report Type: Report from Study
  Country: ES (occurrence: ES)
  Receive Date: 20170804
  Receipt Date: 20170804
  Transmission Date: 20171127
  Serious: Yes (Death)
  Sender: FDA-Public Use
  Company Number: ES-ROCHE-1952631

PATIENT
  Age: 71 Year
  Sex: Female

DRUGS (1)
  1. BEVACIZUMAB. [Suspect]
     Active Substance: BEVACIZUMAB
     Indication: GLIOBLASTOMA
     Route: 042
     Dates: start: 20161013

REACTIONS (3)
  - Off label use [Fatal]
  - Intentional product use issue [Fatal]
  - Glioblastoma [Fatal]

NARRATIVE: CASE EVENT DATE: 20161108
